FAERS Safety Report 8516350-3 (Version None)
Quarter: 2012Q3

REPORT INFORMATION
  Report Type: 
  Country: None (occurrence: None)
  Receive Date: 20120718
  Receipt Date: 20120702
  Transmission Date: 20120928
  Serious: No
  Sender: FDA-Public Use
  Company Number: US-009507513-1205USA04531

PATIENT

DRUGS (2)
  1. JANUVIA [Suspect]
     Dosage: 1 DF, QD
     Route: 048
     Dates: start: 20120215
  2. JANUVIA [Suspect]
     Dosage: 1 DF, QD
     Dates: start: 20120201

REACTIONS (1)
  - PALPITATIONS [None]
